FAERS Safety Report 5703000-4 (Version None)
Quarter: 2008Q2

REPORT INFORMATION
  Report Type: 
  Country: None (occurrence: None)
  Receive Date: 20080408
  Receipt Date: 20080325
  Transmission Date: 20081010
  Serious: Yes (Hospitalization)
  Sender: FDA-Public Use
  Company Number: GXKR2008US02718

PATIENT
  Age: 33 Year
  Sex: Female

DRUGS (1)
  1. DIPHENYDRAMINE (NGX)(DIPHENYDRAMINE) [Suspect]
     Indication: SUICIDE ATTEMPT
     Dosage: 2500 MG, ONCE/SINGLE, ORAL
     Route: 048

REACTIONS (14)
  - ALDOLASE INCREASED [None]
  - BACTERIA URINE IDENTIFIED [None]
  - ELECTROCARDIOGRAM QT PROLONGED [None]
  - HAEMOGLOBIN URINE PRESENT [None]
  - INTENTIONAL OVERDOSE [None]
  - LETHARGY [None]
  - NITRITE URINE PRESENT [None]
  - PH URINE INCREASED [None]
  - PROTEIN URINE PRESENT [None]
  - RENAL FAILURE [None]
  - RHABDOMYOLYSIS [None]
  - SUICIDE ATTEMPT [None]
  - URINE COLOUR ABNORMAL [None]
  - WHITE BLOOD CELL COUNT INCREASED [None]
